FAERS Safety Report 17678500 (Version 23)
Quarter: 2021Q2

REPORT INFORMATION
  Report Type: Other
  Country: US (occurrence: US)
  Receive Date: 20200417
  Receipt Date: 20210617
  Transmission Date: 20210716
  Serious: Yes (Other)
  Sender: FDA-Public Use
  Company Number: US-ROCHE-2583547

PATIENT
  Age: 70 Year
  Sex: Female

DRUGS (13)
  1. VALIUM [Suspect]
     Active Substance: DIAZEPAM
     Indication: PRODUCT USED FOR UNKNOWN INDICATION
     Dosage: 10 MINUTES BEFORE ALECENSA
     Route: 065
  2. OMEGA 3 FISH OILS [Concomitant]
     Active Substance: OMEGA-3 FATTY ACIDS
  3. FISH OIL [Concomitant]
     Active Substance: FISH OIL
  4. PRAVASTATIN. [Concomitant]
     Active Substance: PRAVASTATIN
  5. COMPAZINE [Concomitant]
     Active Substance: PROCHLORPERAZINE MALEATE
     Dosage: 10 MINUTES BEFORE ALECENSA
  6. ALECENSA [Suspect]
     Active Substance: ALECTINIB HYDROCHLORIDE
     Dosage: TAKE 3 CAPSULE(S) BY MOUTH TWICE A DAY
     Route: 048
  7. METOPROLOL. [Concomitant]
     Active Substance: METOPROLOL
  8. ALECENSA [Suspect]
     Active Substance: ALECTINIB HYDROCHLORIDE
     Route: 048
  9. ALECENSA [Suspect]
     Active Substance: ALECTINIB HYDROCHLORIDE
     Indication: LUNG NEOPLASM MALIGNANT
     Dosage: TAKE 4 CAPSULE(S) TWICE A DAY WITH FOOD
     Route: 048
     Dates: start: 202004
  10. ALECENSA [Suspect]
     Active Substance: ALECTINIB HYDROCHLORIDE
     Indication: LUNG NEOPLASM MALIGNANT
     Dosage: ONGOING :YES
     Route: 048
     Dates: start: 202004
  11. ALECENSA [Suspect]
     Active Substance: ALECTINIB HYDROCHLORIDE
     Indication: METASTASES TO CENTRAL NERVOUS SYSTEM
     Dosage: TAKE 3 CAPSULE(S) BY MOUTH TWICE A DAY
     Route: 048
     Dates: start: 202004
  12. AMITIZA [Concomitant]
     Active Substance: LUBIPROSTONE
  13. LOSARTAN. [Concomitant]
     Active Substance: LOSARTAN

REACTIONS (36)
  - Hypertension [Unknown]
  - Nausea [Recovered/Resolved]
  - Haemoglobin decreased [Unknown]
  - Diarrhoea [Unknown]
  - Ocular discomfort [Unknown]
  - Arthralgia [Unknown]
  - Intracranial mass [Unknown]
  - Vision blurred [Unknown]
  - Tachycardia [Unknown]
  - Treatment noncompliance [Unknown]
  - Pollakiuria [Unknown]
  - Constipation [Not Recovered/Not Resolved]
  - Nausea [Unknown]
  - Amnesia [Unknown]
  - Drug ineffective [Unknown]
  - Headache [Unknown]
  - Fatigue [Unknown]
  - Decreased appetite [Unknown]
  - Dysuria [Unknown]
  - White blood cell count increased [Unknown]
  - Dysphonia [Unknown]
  - Claustrophobia [Unknown]
  - Feeling abnormal [Unknown]
  - Atrial fibrillation [Unknown]
  - Pain [Unknown]
  - Constipation [Unknown]
  - Asthenia [Unknown]
  - Peripheral swelling [Unknown]
  - Myalgia [Unknown]
  - Back pain [Unknown]
  - Bradycardia [Unknown]
  - Insomnia [Unknown]
  - Hallucination [Unknown]
  - Dyspnoea [Unknown]
  - Anxiety [Unknown]
  - Micturition urgency [Unknown]

NARRATIVE: CASE EVENT DATE: 202004
